FAERS Safety Report 5370381-3 (Version None)
Quarter: 2007Q2

REPORT INFORMATION
  Report Type: 
  Country: None (occurrence: None)
  Receive Date: 20070626
  Receipt Date: 20061205
  Transmission Date: 20071010
  Serious: No
  Sender: FDA-Public Use
  Company Number: US-AMGEN-US202354

PATIENT
  Age: 83 Year
  Sex: Male

DRUGS (14)
  1. ARANESP [Suspect]
     Indication: RENAL FAILURE CHRONIC
     Route: 058
     Dates: start: 20061017, end: 20061204
  2. DOCUSATE [Concomitant]
     Route: 065
  3. DOXERCALCIFEROL [Concomitant]
     Route: 065
  4. FAMOTIDINE [Concomitant]
     Route: 065
  5. GLIPIZIDE [Concomitant]
     Route: 065
  6. FLUNISOLIDE [Concomitant]
     Route: 065
  7. HYDRALAZINE HYDROCHLORIDE [Concomitant]
     Route: 065
  8. LISINOPRIL [Concomitant]
     Route: 065
  9. LORATADINE [Concomitant]
     Route: 065
  10. LOSARTAN [Concomitant]
     Route: 065
  11. METOPROLOL SUCCINATE [Concomitant]
     Route: 065
  12. SIMVASTATIN [Concomitant]
     Route: 065
  13. TERAZOSIN HCL [Concomitant]
     Route: 065
  14. UNSPECIFIED TOPICAL PRODUCT [Concomitant]
     Route: 061

REACTIONS (3)
  - INJECTION SITE BRUISING [None]
  - INJECTION SITE HAEMORRHAGE [None]
  - INJECTION SITE REACTION [None]
